FAERS Safety Report 9440138 (Version 1)
Quarter: 2013Q3

REPORT INFORMATION
  Report Type: Spontaneous
  Country: US (occurrence: US)
  Receive Date: 20130805
  Receipt Date: 20130805
  Transmission Date: 20140515
  Serious: Yes (Other)
  Sender: FDA-Public Use
  Company Number: US-PFIZER INC-2013225615

PATIENT
  Sex: Female

DRUGS (5)
  1. CELEBREX [Suspect]
     Indication: FIBROMYALGIA
     Dosage: 200 MG, 1X/DAY
     Route: 048
     Dates: end: 20130729
  2. CELEBREX [Suspect]
     Indication: OSTEOARTHRITIS
  3. CYMBALTA [Concomitant]
     Dosage: UNK
  4. FLEXERIL [Concomitant]
     Indication: FIBROMYALGIA
     Dosage: UNK
  5. ATENOLOL [Concomitant]
     Dosage: UNK, 1X/DAY

REACTIONS (6)
  - Road traffic accident [Unknown]
  - Drug dose omission [Unknown]
  - Arthralgia [Unknown]
  - Pain in extremity [Unknown]
  - Musculoskeletal discomfort [Unknown]
  - Insomnia [Unknown]
